FAERS Safety Report 13959955 (Version 7)
Quarter: 2019Q4

REPORT INFORMATION
  Report Type: Report from Study
  Country: KR (occurrence: KR)
  Receive Date: 20170911
  Receipt Date: 20191122
  Transmission Date: 20200122
  Serious: Yes (Other)
  Sender: FDA-Public Use
  Company Number: KR-009507513-1709KOR002189

PATIENT
  Age: 58 Year
  Sex: Female
  Weight: 66 kg

DRUGS (14)
  1. POSACONAZOLE [Suspect]
     Active Substance: POSACONAZOLE
     Dosage: 300 MILLIGRAM, ONCE A DAY
     Route: 048
     Dates: start: 20170404, end: 20170417
  2. NEURONTIN [Concomitant]
     Active Substance: GABAPENTIN
     Indication: MYELODYSPLASTIC SYNDROME
     Dosage: (1 TABLET), TID
     Route: 048
     Dates: start: 20170323, end: 20170621
  3. MAGMIL [Concomitant]
     Active Substance: MAGNESIUM HYDROXIDE
     Indication: ABDOMINAL PAIN UPPER
     Dosage: 2 TABLETS, TID (THREE TIMES DAY)
     Route: 048
     Dates: start: 20170403, end: 20170408
  4. MYPOL [Concomitant]
     Indication: MYELODYSPLASTIC SYNDROME
     Dosage: 2 CAPSULE, TID (THREE TIMES DAY)
     Route: 048
     Dates: start: 20170323, end: 20170420
  5. SOLONDO [Concomitant]
     Active Substance: PREDNISOLONE
     Indication: OSTEOARTHRITIS
     Dosage: 3 TABLET, BID (TWICE A DAY)
     Route: 048
     Dates: start: 20170328, end: 20170403
  6. POSACONAZOLE [Suspect]
     Active Substance: POSACONAZOLE
     Indication: ANTIFUNGAL PROPHYLAXIS
     Dosage: 300 MILLIGRAM, TWICE A DAY
     Route: 048
     Dates: start: 20170403, end: 20170403
  7. MEGACE [Concomitant]
     Active Substance: MEGESTROL ACETATE
     Indication: ABDOMINAL PAIN UPPER
     Dosage: 1 PKG, QD (ONCE DAILY)
     Route: 048
     Dates: start: 20170323, end: 20170328
  8. ULTRACET [Concomitant]
     Active Substance: ACETAMINOPHEN\TRAMADOL HYDROCHLORIDE
     Indication: OSTEOARTHRITIS
     Dosage: 1 TABLET, BID (TWICE A DAY)
     Route: 048
     Dates: start: 20170323, end: 20170621
  9. SOLONDO [Concomitant]
     Active Substance: PREDNISOLONE
     Dosage: 1 TABLET, QD (ONCE DAILY)
     Route: 048
     Dates: start: 20170419, end: 20170509
  10. FEMARA [Concomitant]
     Active Substance: LETROZOLE
     Indication: MYELODYSPLASTIC SYNDROME
     Dosage: 1 TABLET, QD (ONCE DAILY)
     Route: 048
     Dates: start: 20170323, end: 20170621
  11. CALTEO [Concomitant]
     Indication: OSTEOARTHRITIS
     Dosage: 1 TABLET, QD (ONCE DAILY)
     Route: 048
     Dates: start: 20170323
  12. MACPERAN [Concomitant]
     Active Substance: METOCLOPRAMIDE HYDROCHLORIDE
     Indication: PROPHYLAXIS OF NAUSEA AND VOMITING
     Dosage: 1 DF, TID
     Route: 048
     Dates: start: 20170403, end: 20170408
  13. CRAVIT [Concomitant]
     Active Substance: LEVOFLOXACIN
     Indication: MYELODYSPLASTIC SYNDROME
     Dosage: 1 TABLET, QD (ONCE DAILY)
     Route: 048
     Dates: start: 20170403, end: 20170509
  14. SOLONDO [Concomitant]
     Active Substance: PREDNISOLONE
     Dosage: 1 TABLET, BID (TWICE A DAY)
     Route: 048
     Dates: start: 20170404, end: 20170418

REACTIONS (3)
  - Constipation [Recovered/Resolved]
  - Abdominal pain [Recovered/Resolved]
  - Gastric ulcer [Recovered/Resolved]

NARRATIVE: CASE EVENT DATE: 20170411
